FAERS Safety Report 13005693 (Version 4)
Quarter: 2018Q2

REPORT INFORMATION
  Report Type: Report from Study
  Country: US (occurrence: US)
  Receive Date: 20161207
  Receipt Date: 20180605
  Transmission Date: 20180711
  Serious: Yes (Hospitalization)
  Sender: FDA-Public Use
  Company Number: US-EISAI MEDICAL RESEARCH-EC-2016-022765

PATIENT
  Age: 80 Year
  Sex: Female
  Weight: 46.63 kg

DRUGS (26)
  1. LENVATINIB [Suspect]
     Active Substance: LENVATINIB
     Route: 048
     Dates: start: 20170215, end: 20170822
  2. PEMBROLIZUMAB. [Suspect]
     Active Substance: PEMBROLIZUMAB
     Indication: NON-SMALL CELL LUNG CANCER
     Route: 041
     Dates: start: 20160810, end: 20170802
  3. CIPROFLOXACIN. [Concomitant]
     Active Substance: CIPROFLOXACIN
  4. LEVOTHYROXINE. [Concomitant]
     Active Substance: LEVOTHYROXINE
  5. ESCITALOPRAM OXALATE. [Concomitant]
     Active Substance: ESCITALOPRAM OXALATE
  6. HYDROCODONE/ACETAMINOPHEN [Concomitant]
     Active Substance: ACETAMINOPHEN\HYDROCODONE
  7. POTASSIUM CHLORIDE. [Concomitant]
     Active Substance: POTASSIUM CHLORIDE
  8. LOMOTIL [Concomitant]
     Active Substance: ATROPINE SULFATE\DIPHENOXYLATE HYDROCHLORIDE
  9. ATIVAN [Concomitant]
     Active Substance: LORAZEPAM
  10. IMODIUM [Concomitant]
     Active Substance: LOPERAMIDE HYDROCHLORIDE
  11. HYDRALAZINE [Concomitant]
     Active Substance: HYDRALAZINE HYDROCHLORIDE
  12. MAGNESIUM OXIDE. [Concomitant]
     Active Substance: MAGNESIUM OXIDE
  13. CLONIDINE. [Concomitant]
     Active Substance: CLONIDINE
  14. LENVATINIB [Suspect]
     Active Substance: LENVATINIB
     Route: 048
     Dates: start: 20161012, end: 20161121
  15. FLAGYL [Concomitant]
     Active Substance: METRONIDAZOLE\METRONIDAZOLE HYDROCHLORIDE
  16. CARVEDILOL. [Concomitant]
     Active Substance: CARVEDILOL
  17. LISINOPRIL. [Concomitant]
     Active Substance: LISINOPRIL
  18. ASPIRIN. [Concomitant]
     Active Substance: ASPIRIN
  19. PROCHLORPERAZINE MALEATE. [Concomitant]
     Active Substance: PROCHLORPERAZINE MALEATE
  20. ZOFRAN [Concomitant]
     Active Substance: ONDANSETRON HYDROCHLORIDE
  21. METRONIDAZOLE. [Concomitant]
     Active Substance: METRONIDAZOLE
  22. ISOSORBIDE DINITRATE. [Concomitant]
     Active Substance: ISOSORBIDE DINITRATE
  23. PROMETHAZINE HCL [Concomitant]
     Active Substance: PROMETHAZINE HYDROCHLORIDE
  24. FUROSEMIDE. [Concomitant]
     Active Substance: FUROSEMIDE
  25. LENVATINIB [Suspect]
     Active Substance: LENVATINIB
     Indication: NON-SMALL CELL LUNG CANCER
     Route: 048
     Dates: start: 20160810, end: 20161011
  26. HCTZ [Concomitant]
     Active Substance: HYDROCHLOROTHIAZIDE

REACTIONS (4)
  - Encephalopathy [Recovered/Resolved]
  - Chronic obstructive pulmonary disease [Recovered/Resolved]
  - Colitis [Recovered/Resolved]
  - Diarrhoea [Recovered/Resolved]

NARRATIVE: CASE EVENT DATE: 20160817
